FAERS Safety Report 7691736-8 (Version None)
Quarter: 2011Q3

REPORT INFORMATION
  Report Type: 
  Country: None (occurrence: None)
  Receive Date: 20110818
  Receipt Date: 20110809
  Transmission Date: 20111222
  Serious: Yes (Death, Other)
  Sender: FDA-Public Use
  Company Number: US-VIIV HEALTHCARE LIMITED-A0941271B

PATIENT
  Sex: Male
  Weight: 0.2 kg

DRUGS (2)
  1. KALETRA [Suspect]
     Indication: ANTIRETROVIRAL THERAPY
     Dosage: 4TAB PER DAY
     Route: 064
     Dates: start: 20110201, end: 20110629
  2. TRIZIVIR [Suspect]
     Indication: ANTIRETROVIRAL THERAPY
     Dosage: 2TAB PER DAY
     Route: 064
     Dates: start: 20110201, end: 20110629

REACTIONS (3)
  - INTRA-UTERINE DEATH [None]
  - UMBILICAL CORD AROUND NECK [None]
  - MATERNAL EXPOSURE DURING PREGNANCY [None]
